FAERS Safety Report 11461679 (Version 1)
Quarter: 2015Q3

REPORT INFORMATION
  Report Type: Spontaneous
  Country: US (occurrence: US)
  Receive Date: 20150831
  Receipt Date: 20150831
  Transmission Date: 20151125
  Serious: No
  Sender: FDA-Public Use
  Company Number: US-ELI_LILLY_AND_COMPANY-US200908004960

PATIENT
  Age: 57 Year
  Sex: Female

DRUGS (7)
  1. ACTOPLUS MET [Concomitant]
     Active Substance: METFORMIN HYDROCHLORIDE\PIOGLITAZONE HYDROCHLORIDE
     Indication: TYPE 2 DIABETES MELLITUS
  2. SKELAXIN [Concomitant]
     Active Substance: METAXALONE
     Indication: FIBROMYALGIA
     Dosage: 800 MG, 3/D
     Route: 048
     Dates: start: 2009, end: 20090807
  3. BYETTA [Concomitant]
     Active Substance: EXENATIDE
  4. LANTUS [Concomitant]
     Active Substance: INSULIN GLARGINE
     Indication: TYPE 2 DIABETES MELLITUS
     Dates: start: 2006
  5. LIPITOR [Concomitant]
     Active Substance: ATORVASTATIN CALCIUM
     Indication: PROPHYLAXIS
     Dosage: 10 MG, DAILY (1/D)
     Route: 048
     Dates: start: 2008
  6. CYMBALTA [Suspect]
     Active Substance: DULOXETINE HYDROCHLORIDE
     Indication: FIBROMYALGIA
     Dosage: 30 MG, DAILY (1/D)
     Dates: start: 20090812, end: 20090818
  7. BABY ASPIRIN [Concomitant]
     Active Substance: ASPIRIN

REACTIONS (9)
  - Blood calcium decreased [Unknown]
  - Amylase decreased [Unknown]
  - Lipase increased [Unknown]
  - Flatulence [Recovered/Resolved]
  - Back pain [Unknown]
  - Gastritis [Unknown]
  - Nausea [Recovered/Resolved]
  - Blood albumin decreased [Unknown]
  - Abdominal pain [Not Recovered/Not Resolved]

NARRATIVE: CASE EVENT DATE: 200908
